FAERS Safety Report 9376213 (Version 1)
Quarter: 2013Q3

REPORT INFORMATION
  Report Type: Report from Study
  Country: CZ (occurrence: CZ)
  Receive Date: 20130701
  Receipt Date: 20130701
  Transmission Date: 20140515
  Serious: Yes (Life-Threatening, Hospitalization, Other)
  Sender: FDA-Public Use
  Company Number: CZ-009507513-0801USA00690

PATIENT
  Age: 69 Year
  Sex: Male
  Weight: 80 kg

DRUGS (12)
  1. EZETIMIBE (+) SIMVASTATIN [Suspect]
     Indication: ACUTE CORONARY SYNDROME
     Dosage: 10-40 MG, QD
     Route: 048
     Dates: start: 20070824, end: 2007
  2. EZETIMIBE (+) SIMVASTATIN [Suspect]
     Dosage: 10-40 MG, QD
     Route: 048
     Dates: start: 2007, end: 20071220
  3. PLACEBO [Suspect]
     Indication: ACUTE CORONARY SYNDROME
     Dosage: 2 DF, QD
     Route: 048
     Dates: start: 20070824
  4. PLACEBO [Suspect]
     Dosage: 2 DF, QD
     Route: 048
     Dates: end: 20071220
  5. FUROSEMIDE [Suspect]
     Indication: CARDIAC FAILURE CONGESTIVE
     Route: 042
     Dates: start: 20071008, end: 20071011
  6. ASPIRIN [Concomitant]
     Dosage: TOTAL DAILY DOSE 100MG
     Route: 048
     Dates: start: 20070819
  7. OMEPRAZOLE [Concomitant]
     Dosage: TOTAL DAILY DOSE 20MG
     Route: 048
     Dates: start: 20070819
  8. CLOPIDOGREL BISULFATE [Concomitant]
     Dosage: TOTAL DAILY DOSE 75MG
     Route: 048
     Dates: start: 20070819
  9. PERINDOPRIL [Concomitant]
     Dosage: TOTAL DAILY DOSE 4 MG
     Route: 048
     Dates: start: 20070819
  10. BISOPROLOL [Concomitant]
     Dosage: TOTAL DAILY DOSE 2.5MG
     Route: 048
     Dates: start: 20070819
  11. OMNIC [Concomitant]
     Dosage: TOTAL DAILY DOSE 0.4MG
     Route: 048
     Dates: start: 20070930, end: 20071220
  12. RIVOTRIL [Concomitant]
     Dosage: TOTAL DAILY DOSE 1.5MG
     Route: 048
     Dates: start: 20070930, end: 20071011

REACTIONS (2)
  - Pulmonary oedema [Recovered/Resolved]
  - Renal failure [Not Recovered/Not Resolved]
